FAERS Safety Report 12092424 (Version 1)
Quarter: 2016Q1

REPORT INFORMATION
  Report Type: Spontaneous
  Country: US (occurrence: None)
  Receive Date: 20160218
  Receipt Date: 20160218
  Transmission Date: 20160526
  Serious: Yes (Disabling)
  Sender: FDA-Public Use
  Company Number: None

PATIENT
  Age: 75 Year
  Sex: Male
  Weight: 93.9 kg

DRUGS (18)
  1. TRAZODONE [Concomitant]
     Active Substance: TRAZODONE HYDROCHLORIDE
  2. VITAMIN C [Concomitant]
     Active Substance: ASCORBIC ACID
  3. LISINOPRIL. [Concomitant]
     Active Substance: LISINOPRIL
  4. DOXAZOYSIN [Concomitant]
  5. PROVENTIL [Concomitant]
     Active Substance: ALBUTEROL
  6. VITAMIN D3 [Concomitant]
     Active Substance: CHOLECALCIFEROL
  7. STRIVERDI RESPIMAT [Suspect]
     Active Substance: OLODATEROL HYDROCHLORIDE
     Indication: PRODUCT USED FOR UNKNOWN INDICATION
     Dosage: PUFFS
     Route: 055
     Dates: start: 20160126, end: 20160212
  8. MVI [Concomitant]
     Active Substance: VITAMINS
  9. DILTIAZEM [Concomitant]
     Active Substance: DILTIAZEM
  10. LASIX [Concomitant]
     Active Substance: FUROSEMIDE
  11. FISH OIL [Concomitant]
     Active Substance: FISH OIL
  12. ASMANEX [Concomitant]
     Active Substance: MOMETASONE FUROATE
  13. STOOL SOFTENER [Concomitant]
     Active Substance: DOCUSATE CALCIUM
  14. DOXYCYCLINE. [Concomitant]
     Active Substance: DOXYCYCLINE
  15. GLIPIZIDE. [Concomitant]
     Active Substance: GLIPIZIDE
  16. OMEPRAZOLE. [Concomitant]
     Active Substance: OMEPRAZOLE
  17. SPIRIVA [Concomitant]
     Active Substance: TIOTROPIUM BROMIDE MONOHYDRATE
  18. NIACIN. [Concomitant]
     Active Substance: NIACIN

REACTIONS (3)
  - Dyspnoea [None]
  - Product substitution issue [None]
  - Upper respiratory tract congestion [None]

NARRATIVE: CASE EVENT DATE: 20160212
